FAERS Safety Report 5624905-9 (Version None)
Quarter: 2008Q1

REPORT INFORMATION
  Report Type: 
  Country: None (occurrence: None)
  Receive Date: 20080213
  Receipt Date: 20080208
  Transmission Date: 20080703
  Serious: Yes (Life-Threatening, Hospitalization)
  Sender: FDA-Public Use
  Company Number: US-BRISTOL-MYERS SQUIBB COMPANY-14071070

PATIENT
  Sex: Female

DRUGS (2)
  1. IXEMPRA [Suspect]
     Indication: BREAST CANCER METASTATIC
  2. NAVELBINE [Concomitant]

REACTIONS (4)
  - CARDIAC FAILURE CONGESTIVE [None]
  - RENAL FAILURE [None]
  - RESPIRATORY FAILURE [None]
  - VENTRICULAR ARRHYTHMIA [None]
